FAERS Safety Report 10472087 (Version 1)
Quarter: 2014Q3

REPORT INFORMATION
  Report Type: Spontaneous
  Country: US (occurrence: None)
  Receive Date: 20140917
  Receipt Date: 20140917
  Transmission Date: 20150326
  Serious: No
  Sender: FDA-Public Use
  Company Number: 2014CT000032

PATIENT
  Age: 41 Year
  Sex: Female

DRUGS (14)
  1. LEVOXYL [Concomitant]
     Active Substance: LEVOTHYROXINE SODIUM
  2. AMITRIPTYLINE [Concomitant]
     Active Substance: AMITRIPTYLINE
  3. TAMSULOSIN [Concomitant]
     Active Substance: TAMSULOSIN
  4. VIIBRYD [Concomitant]
     Active Substance: VILAZODONE HYDROCHLORIDE
  5. CYTOMEL [Concomitant]
     Active Substance: LIOTHYRONINE SODIUM
  6. TOPAMAX [Concomitant]
     Active Substance: TOPIRAMATE
  7. KORLYM [Suspect]
     Active Substance: MIFEPRISTONE
     Indication: CUSHING^S SYNDROME
     Dates: start: 20140318
  8. SPIRONOLACTONE. [Concomitant]
     Active Substance: SPIRONOLACTONE
  9. LORAZEPAM. [Concomitant]
     Active Substance: LORAZEPAM
  10. LYRICA [Concomitant]
     Active Substance: PREGABALIN
  11. KLONOPIN [Concomitant]
     Active Substance: CLONAZEPAM
  12. HIZENTRA [Concomitant]
     Active Substance: HUMAN IMMUNOGLOBULIN G
  13. VYVANSE [Concomitant]
     Active Substance: LISDEXAMFETAMINE DIMESYLATE
  14. CYANOCOBALAMIN. [Concomitant]
     Active Substance: CYANOCOBALAMIN

REACTIONS (16)
  - Fatigue [None]
  - Alopecia [None]
  - Hormone level abnormal [None]
  - Neuralgia [None]
  - Nausea [None]
  - Myalgia [None]
  - Arthralgia [None]
  - Oedema mouth [None]
  - Muscle spasms [None]
  - Hyperhidrosis [None]
  - Oedema peripheral [None]
  - Oedema [None]
  - Emotional disorder [None]
  - Asthenia [None]
  - Malaise [None]
  - Muscular weakness [None]

NARRATIVE: CASE EVENT DATE: 201403
